FAERS Safety Report 5739686-8 (Version None)
Quarter: 2008Q2

REPORT INFORMATION
  Report Type: 
  Country: None (occurrence: None)
  Receive Date: 20080513
  Receipt Date: 20080428
  Transmission Date: 20081010
  Serious: Yes (Hospitalization)
  Sender: FDA-Public Use
  Company Number: 02100-JPN-07-0163

PATIENT
  Age: 73 Year
  Sex: Male
  Weight: 60 kg

DRUGS (6)
  1. PLETAL [Suspect]
     Indication: CEREBRAL INFARCTION
     Dates: start: 20050927
  2. BLOPRESS (CANDESARTAN CILEXETIL) TABLET [Concomitant]
  3. NORVASC [Concomitant]
  4. GASTER D (FAMOTIDINE) TABLET [Concomitant]
  5. INNOLET 30R (INSULIN HUMAN (GENETICAL RECOMBINATION)) INJECTION [Concomitant]
  6. ROHYPNOL (FLUNITRAZEPAM) TABLET [Concomitant]

REACTIONS (5)
  - BLOOD GLUCOSE INCREASED [None]
  - BLOOD UREA INCREASED [None]
  - DIARRHOEA [None]
  - HYPOGLYCAEMIA [None]
  - PANCREATIC CARCINOMA [None]
